FAERS Safety Report 7584335-X (Version None)
Quarter: 2011Q2

REPORT INFORMATION
  Report Type: 
  Country: None (occurrence: None)
  Receive Date: 20110630
  Receipt Date: 20110616
  Transmission Date: 20111010
  Serious: Yes (Hospitalization)
  Sender: FDA-Public Use
  Company Number: US-UCBSA-035667

PATIENT
  Sex: Female
  Weight: 71.21 kg

DRUGS (7)
  1. CIMZIA [Suspect]
     Route: 058
     Dates: start: 20101217, end: 20110117
  2. CIMZIA [Suspect]
     Route: 058
     Dates: start: 20110303
  3. PREDNISONE [Concomitant]
     Dates: start: 20100301
  4. DIPHENOXYLATE HCL + ATROPINE SULFATE [Concomitant]
  5. DIPHENOXYLATE HCL + ATROPINE SULFATE [Concomitant]
  6. VITAMIN D [Concomitant]
  7. CIMZIA [Suspect]
     Indication: CROHN'S DISEASE
     Route: 058
     Dates: start: 20101105, end: 20101126

REACTIONS (2)
  - CROHN'S DISEASE [None]
  - PELVIC INFLAMMATORY DISEASE [None]
